FAERS Safety Report 20525023 (Version 3)
Quarter: 2022Q2

REPORT INFORMATION
  Report Type: Spontaneous
  Country: US (occurrence: US)
  Receive Date: 20220228
  Receipt Date: 20220603
  Transmission Date: 20220720
  Serious: No
  Sender: FDA-Public Use
  Company Number: US-BIOVITRUM-2022US02609

PATIENT
  Age: 19 Year
  Sex: Female

DRUGS (8)
  1. KINERET [Suspect]
     Active Substance: ANAKINRA
     Indication: Still^s disease
     Route: 058
     Dates: start: 20220213
  2. GABAPENTIN [Concomitant]
     Active Substance: GABAPENTIN
  3. PREDNISONE [Concomitant]
     Active Substance: PREDNISONE
  4. TRAMADOL [Concomitant]
     Active Substance: TRAMADOL
  5. BUPROPION [Concomitant]
     Active Substance: BUPROPION
  6. CELEBREX [Concomitant]
     Active Substance: CELECOXIB
  7. VYVANSE [Concomitant]
     Active Substance: LISDEXAMFETAMINE DIMESYLATE
  8. METHOCARBAMOL [Concomitant]
     Active Substance: METHOCARBAMOL

REACTIONS (27)
  - Sinusitis [Unknown]
  - Dyspnoea [Unknown]
  - Cough [Recovering/Resolving]
  - Oropharyngeal pain [Unknown]
  - Chest pain [Unknown]
  - Influenza [Unknown]
  - Fatigue [Recovering/Resolving]
  - Nasal congestion [Recovering/Resolving]
  - Wheezing [Unknown]
  - Malaise [Unknown]
  - Pyrexia [Recovering/Resolving]
  - Stress [Unknown]
  - Insomnia [Unknown]
  - Hypersomnia [Unknown]
  - Tooth fracture [Unknown]
  - Weight increased [Unknown]
  - Skin striae [Unknown]
  - Alopecia [Unknown]
  - Arthralgia [Recovering/Resolving]
  - Joint swelling [Unknown]
  - Arthritis [Unknown]
  - Headache [Unknown]
  - Injection site erythema [Recovered/Resolved]
  - Injection site mass [Recovered/Resolved]
  - Product dose omission in error [Unknown]
  - Product dose omission issue [Unknown]
  - Off label use [Unknown]

NARRATIVE: CASE EVENT DATE: 20220213
